FAERS Safety Report 7586533-8 (Version None)
Quarter: 2011Q3

REPORT INFORMATION
  Report Type: 
  Country: None (occurrence: None)
  Receive Date: 20110701
  Receipt Date: 20110616
  Transmission Date: 20111222
  Serious: Yes (Other)
  Sender: FDA-Public Use
  Company Number: GB-WATSON-2011-09022

PATIENT
  Sex: Female

DRUGS (5)
  1. VALPROATE SODIUM [Concomitant]
     Indication: AFFECTIVE DISORDER
     Route: 065
  2. RAMIPRIL [Suspect]
     Indication: PRODUCT USED FOR UNKNOWN INDICATION
     Route: 048
  3. SEROQUEL [Suspect]
     Indication: SCHIZOAFFECTIVE DISORDER BIPOLAR TYPE
     Route: 048
  4. SEROQUEL [Suspect]
     Route: 065
  5. ESCITALOPRAM [Concomitant]
     Indication: ANXIETY
     Route: 065

REACTIONS (6)
  - DIVERTICULITIS [None]
  - ANXIETY [None]
  - DIARRHOEA [None]
  - DIZZINESS [None]
  - DRUG INTOLERANCE [None]
  - ORTHOSTATIC HYPOTENSION [None]
